FAERS Safety Report 16394181 (Version 1)
Quarter: 2019Q2

REPORT INFORMATION
  Report Type: Spontaneous
  Country: FR (occurrence: FR)
  Receive Date: 20190605
  Receipt Date: 20190605
  Transmission Date: 20190711
  Serious: Yes (Hospitalization)
  Sender: FDA-Public Use
  Company Number: FR-JNJFOC-20190542430

PATIENT
  Age: 47 Year
  Sex: Male

DRUGS (4)
  1. LYSANXIA [Suspect]
     Active Substance: PRAZEPAM
     Indication: WRONG PRODUCT ADMINISTERED
     Route: 048
     Dates: start: 20190502, end: 20190502
  2. RISPERDAL [Suspect]
     Active Substance: RISPERIDONE
     Indication: WRONG PRODUCT ADMINISTERED
     Route: 048
     Dates: start: 20190502, end: 20190502
  3. SOLIAN [Suspect]
     Active Substance: AMISULPRIDE
     Indication: WRONG PRODUCT ADMINISTERED
     Route: 048
     Dates: start: 20190502, end: 20190502
  4. TEGRETOL [Suspect]
     Active Substance: CARBAMAZEPINE
     Indication: WRONG PRODUCT ADMINISTERED
     Route: 048
     Dates: start: 20190502, end: 20190502

REACTIONS (4)
  - Wrong product administered [Recovered/Resolved]
  - Tachycardia [Recovered/Resolved]
  - Somnolence [Recovered/Resolved with Sequelae]
  - Wrong patient received product [Recovered/Resolved]

NARRATIVE: CASE EVENT DATE: 20190502
